FAERS Safety Report 21923048 (Version 2)
Quarter: 2023Q1

REPORT INFORMATION
  Report Type: Spontaneous
  Country: US (occurrence: US)
  Receive Date: 20230129
  Receipt Date: 20230225
  Transmission Date: 20230418
  Serious: Yes (Other)
  Sender: FDA-Public Use
  Company Number: US-AUROBINDO-AUR-APL-2023-003048

PATIENT
  Age: 31 Year
  Sex: Female

DRUGS (7)
  1. BUPROPION HYDROCHLORIDE [Suspect]
     Active Substance: BUPROPION HYDROCHLORIDE
     Indication: Mood altered
     Dosage: 450 MILLIGRAM, ONCE A DAY
     Route: 065
  2. BUPROPION HYDROCHLORIDE [Suspect]
     Active Substance: BUPROPION HYDROCHLORIDE
     Indication: Sexual dysfunction
  3. LAMOTRIGINE [Suspect]
     Active Substance: LAMOTRIGINE
     Indication: Product used for unknown indication
     Dosage: UNK
     Route: 065
  4. FOLIC ACID [Suspect]
     Active Substance: FOLIC ACID
     Indication: Product used for unknown indication
     Dosage: 1 MILLIGRAM
     Route: 065
  5. LEVOTHYROXINE SODIUM\LIOTHYRONINE SODIUM [Suspect]
     Active Substance: LEVOTHYROXINE SODIUM\LIOTHYRONINE SODIUM
     Indication: Product used for unknown indication
     Dosage: UNK
     Route: 065
  6. LITHIUM [Suspect]
     Active Substance: LITHIUM
     Indication: Antipsychotic therapy
     Dosage: UNK
     Route: 065
  7. LURASIDONE [Suspect]
     Active Substance: LURASIDONE
     Indication: Bipolar I disorder
     Dosage: 80 MILLIGRAM, ONCE A DAY
     Route: 065

REACTIONS (5)
  - Bipolar II disorder [Unknown]
  - Depressive symptom [Unknown]
  - Anxiety [Unknown]
  - Drug withdrawal syndrome [Unknown]
  - Maternal exposure during pregnancy [Unknown]
